FAERS Safety Report 24917313 (Version 1)
Quarter: 2025Q1

REPORT INFORMATION
  Report Type: Spontaneous
  Country: US (occurrence: None)
  Receive Date: 20250202
  Receipt Date: 20250202
  Transmission Date: 20250408
  Serious: Yes (Hospitalization)
  Sender: FDA-CTU
  Company Number: None

PATIENT
  Age: 28 Year
  Sex: Female
  Weight: 66.15 kg

DRUGS (1)
  1. MILI [Suspect]
     Active Substance: ETHINYL ESTRADIOL\NORGESTIMATE
     Indication: Menstruation irregular
     Dosage: 1 TABLET  DAILY ORAL
     Route: 048
     Dates: start: 20250127, end: 20250130

REACTIONS (4)
  - Ophthalmic migraine [None]
  - Paraesthesia [None]
  - Hypoaesthesia [None]
  - Vision blurred [None]

NARRATIVE: CASE EVENT DATE: 20250128
